FAERS Safety Report 8822538 (Version 1)
Quarter: 2012Q4

REPORT INFORMATION
  Report Type: 
  Country: ES (occurrence: ES)
  Receive Date: 20121003
  Receipt Date: 20121003
  Transmission Date: 20130627
  Serious: Yes (Life-Threatening, Hospitalization)
  Sender: FDA-Public Use
  Company Number: ES-SANOFI-AVENTIS-2012SA071273

PATIENT
  Age: 84 Year
  Sex: Male

DRUGS (3)
  1. SEGURIL [Suspect]
     Indication: DRUG USE FOR UNKNOWN INDICATION
     Route: 048
     Dates: start: 20090728
  2. TIMOLOL [Suspect]
     Indication: GLAUCOMA
     Dosage: 5 mg/3 ml eye drops, each drop every 12 hours
     Route: 047
     Dates: start: 20060101, end: 20120710
  3. ENALAPRIL MALEATE [Concomitant]
     Route: 048
     Dates: start: 20090817

REACTIONS (2)
  - Bradycardia [Recovering/Resolving]
  - Atrioventricular block complete [Recovering/Resolving]
